FAERS Safety Report 5310045-5 (Version None)
Quarter: 2007Q2

REPORT INFORMATION
  Report Type: 
  Country: None (occurrence: None)
  Receive Date: 20070427
  Receipt Date: 20070424
  Transmission Date: 20071010
  Serious: Yes (Hospitalization)
  Sender: FDA-Public Use
  Company Number: JP-JPN-A200701129

PATIENT
  Age: 25 Year
  Sex: Female
  Weight: 45 kg

DRUGS (6)
  1. PAXIL [Suspect]
     Indication: DEPRESSIVE SYMPTOM
     Dosage: 40MG PER DAY
     Route: 048
     Dates: start: 20050801, end: 20070313
  2. LORAZEPAM [Concomitant]
     Indication: DEPRESSION
     Dosage: 3MG PER DAY
     Route: 048
     Dates: start: 20070119
  3. RITALIN [Concomitant]
     Indication: DEPRESSION
     Dosage: 10MG PER DAY
     Route: 048
     Dates: start: 20070101
  4. MYSLEE [Concomitant]
     Indication: INSOMNIA
     Dosage: 10MG PER DAY
     Route: 048
     Dates: start: 20061120
  5. GOODMIN [Concomitant]
     Indication: INSOMNIA
     Dosage: .25MG PER DAY
     Route: 048
     Dates: end: 20070225
  6. SILECE [Concomitant]
     Indication: INSOMNIA
     Dosage: 2MG PER DAY
     Route: 048
     Dates: start: 20061115, end: 20070109

REACTIONS (3)
  - EPILEPSY [None]
  - GASTRIC DISORDER [None]
  - SUBCUTANEOUS HAEMATOMA [None]
